FAERS Safety Report 16050947 (Version 1)
Quarter: 2019Q1

REPORT INFORMATION
  Report Type: Spontaneous
  Country: US (occurrence: US)
  Receive Date: 20190308
  Receipt Date: 20190308
  Transmission Date: 20190418
  Serious: No
  Sender: FDA-Public Use
  Company Number: US-TEVA-2019-US-1010663

PATIENT
  Age: 63 Year
  Sex: Male

DRUGS (1)
  1. LAMOTRIGINE EXTENDED RELEASE TABLETS TEVA [Suspect]
     Active Substance: LAMOTRIGINE
     Indication: BIPOLAR DISORDER
     Route: 065
     Dates: start: 201812

REACTIONS (3)
  - Drug ineffective [Unknown]
  - Mental disorder [Unknown]
  - Product substitution issue [Unknown]

NARRATIVE: CASE EVENT DATE: 201812
